APPROVED DRUG PRODUCT: AVENTYL HYDROCHLORIDE
Active Ingredient: NORTRIPTYLINE HYDROCHLORIDE
Strength: EQ 25MG BASE
Dosage Form/Route: CAPSULE;ORAL
Application: N014684 | Product #002
Applicant: ELI LILLY AND CO
Approved: Approved Prior to Jan 1, 1982 | RLD: No | RS: No | Type: DISCN